FAERS Safety Report 8230667-1 (Version None)
Quarter: 2012Q1

REPORT INFORMATION
  Report Type: 
  Country: None (occurrence: None)
  Receive Date: 20120321
  Receipt Date: 20120307
  Transmission Date: 20120608
  Serious: Yes (Other)
  Sender: FDA-Public Use
  Company Number: JPI-P-020239

PATIENT
  Age: 63 Year
  Sex: Female
  Weight: 83.0083 kg

DRUGS (12)
  1. LORATADINE [Concomitant]
  2. VITAMIN D [Concomitant]
  3. VERAPAMIL [Concomitant]
  4. AMPHETAMINE, DEXTROAMPHETAMINE MIXED SALTS [Concomitant]
  5. TRAVOPROST OPHTHALMIC (SOLUTION) [Concomitant]
  6. TRAZODONE HCL [Concomitant]
  7. RANITIDINE HCL [Concomitant]
  8. XYREM [Suspect]
     Indication: CATAPLEXY
     Dosage: SEE IMAGE
     Route: 048
     Dates: start: 20120221, end: 20120305
  9. XYREM [Suspect]
     Indication: CATAPLEXY
     Dosage: SEE IMAGE
     Route: 048
     Dates: start: 20110810
  10. XYREM [Suspect]
     Indication: CATAPLEXY
     Dosage: SEE IMAGE
     Route: 048
     Dates: end: 20120220
  11. CYANOCOBALAMIN [Concomitant]
  12. HYDROCHLOROTHIAZIDE [Concomitant]

REACTIONS (19)
  - INCREASED APPETITE [None]
  - BLOOD PRESSURE INCREASED [None]
  - WEIGHT INCREASED [None]
  - URINE OUTPUT INCREASED [None]
  - HEADACHE [None]
  - GOUT [None]
  - SWELLING FACE [None]
  - TONGUE INJURY [None]
  - PNEUMONIA [None]
  - DEPRESSION [None]
  - CONDITION AGGRAVATED [None]
  - LIBIDO INCREASED [None]
  - ARTHRITIS [None]
  - CARDIAC FAILURE CHRONIC [None]
  - POLLAKIURIA [None]
  - RASH [None]
  - UPPER RESPIRATORY TRACT INFECTION [None]
  - BRUXISM [None]
  - FLUID RETENTION [None]
